FAERS Safety Report 7954038-8 (Version None)
Quarter: 2011Q4

REPORT INFORMATION
  Report Type: 
  Country: None (occurrence: None)
  Receive Date: 20111202
  Receipt Date: 20111122
  Transmission Date: 20120403
  Serious: Yes (Hospitalization, Other)
  Sender: FDA-Public Use
  Company Number: US-BAYER-2011-013976

PATIENT
  Age: 26 Year
  Sex: Female
  Weight: 113 kg

DRUGS (1)
  1. YAZ [Suspect]
     Indication: CONTRACEPTION
     Dosage: UNK
     Dates: start: 20080101, end: 20100201

REACTIONS (9)
  - CHOLECYSTITIS ACUTE [None]
  - ABDOMINAL PAIN [None]
  - GALLBLADDER DISORDER [None]
  - PAIN [None]
  - VOMITING [None]
  - ANXIETY [None]
  - NAUSEA [None]
  - POST CHOLECYSTECTOMY SYNDROME [None]
  - BILIARY COLIC [None]
